FAERS Safety Report 8938492 (Version 1)
Quarter: 2012Q4

REPORT INFORMATION
  Report Type: 
  Country: CN (occurrence: CN)
  Receive Date: 20121130
  Receipt Date: 20121130
  Transmission Date: 20130627
  Serious: Yes (Hospitalization, Other)
  Sender: FDA-Public Use
  Company Number: PHHY2012CN107968

PATIENT
  Age: 38 Year
  Sex: Female

DRUGS (1)
  1. LAMISIL [Suspect]
     Indication: ONYCHOMYCOSIS
     Dosage: 250 mg, once daily
     Route: 048
     Dates: start: 20081002, end: 20081202

REACTIONS (5)
  - Hepatic failure [Unknown]
  - Hepatitis C virus test positive [Unknown]
  - Asthenia [Recovering/Resolving]
  - Chromaturia [Recovering/Resolving]
  - Decreased appetite [Recovering/Resolving]
